FAERS Safety Report 17264320 (Version 2)
Quarter: 2020Q1

REPORT INFORMATION
  Report Type: Spontaneous
  Country: GB (occurrence: GB)
  Receive Date: 20200113
  Receipt Date: 20200219
  Transmission Date: 20200409
  Serious: Yes (Death, Hospitalization)
  Sender: FDA-Public Use
  Company Number: GB-NOVOPROD-706401

PATIENT
  Sex: Female

DRUGS (1)
  1. NOVORAPID [Suspect]
     Active Substance: INSULIN ASPART
     Indication: TYPE 1 DIABETES MELLITUS
     Dosage: UNK
     Route: 058

REACTIONS (4)
  - Death [Fatal]
  - Head injury [Unknown]
  - Diabetic ketoacidosis [Unknown]
  - Fall [Unknown]

NARRATIVE: CASE EVENT DATE: 20191226
